FAERS Safety Report 23597817 (Version 2)
Quarter: 2025Q1

REPORT INFORMATION
  Report Type: Spontaneous
  Country: US (occurrence: US)
  Receive Date: 20240305
  Receipt Date: 20250210
  Transmission Date: 20250409
  Serious: No
  Sender: BIOMARIN
  Company Number: US-SA-SAC20240223000036

PATIENT

DRUGS (1)
  1. ALDURAZYME [Suspect]
     Active Substance: LARONIDASE
     Indication: Mucopolysaccharidosis I
     Dosage: 26.1 MG, QW
     Route: 042
     Dates: start: 202103, end: 20240218

REACTIONS (5)
  - Localised oedema [Unknown]
  - Complication associated with device [Unknown]
  - Catheter site bruise [Unknown]
  - Infusion site extravasation [Unknown]
  - Central venous catheterisation [Unknown]

NARRATIVE: CASE EVENT DATE: 20240218
